FAERS Safety Report 7334465-2 (Version None)
Quarter: 2011Q1

REPORT INFORMATION
  Report Type: 
  Country: None (occurrence: None)
  Receive Date: 20110307
  Receipt Date: 20110223
  Transmission Date: 20110831
  Serious: Yes (Hospitalization)
  Sender: FDA-Public Use
  Company Number: PHHY2011JP15777

PATIENT
  Age: 89 Year
  Sex: Female

DRUGS (4)
  1. LEPETAN [Suspect]
     Indication: HERPES ZOSTER
     Dosage: 0.2 MG, DAILY
     Route: 054
  2. TEGRETOL [Suspect]
     Indication: HERPES ZOSTER
     Dosage: 300 MG, DAILY
     Route: 048
  3. TETRAMIDE [Concomitant]
  4. MARCAINE [Concomitant]
     Dosage: UNK

REACTIONS (2)
  - LIVER DISORDER [None]
  - SICK SINUS SYNDROME [None]
